FAERS Safety Report 14563087 (Version 3)
Quarter: 2018Q2

REPORT INFORMATION
  Report Type: Spontaneous
  Country: US (occurrence: US)
  Receive Date: 20180222
  Receipt Date: 20180427
  Transmission Date: 20180711
  Serious: Yes (Hospitalization, Other)
  Sender: FDA-Public Use
  Company Number: US-PFIZER INC-2018072436

PATIENT
  Age: 17 Year
  Sex: Female
  Weight: 93.8 kg

DRUGS (8)
  1. SYNTHROID [Suspect]
     Active Substance: LEVOTHYROXINE SODIUM
     Indication: THYROID DISORDER
     Dosage: 112 UG, DAILY (112MCG, 1 IN 1D)
     Route: 048
  2. PROZAC [Suspect]
     Active Substance: FLUOXETINE HYDROCHLORIDE
     Dosage: 20 MG, 1X/DAY (1 CAPSULE , 1 IN 1 D)
     Route: 048
     Dates: start: 2016
  3. CORTEF [Suspect]
     Active Substance: HYDROCORTISONE
     Indication: HORMONE REPLACEMENT THERAPY
     Dosage: ONE AND ONE-HALF TABLET, 2X/DAY
     Route: 048
  4. HUMATROPE [Suspect]
     Active Substance: SOMATROPIN
     Indication: GROWTH HORMONE DEFICIENCY
     Dosage: UNK
     Dates: start: 201303
  5. GENOTROPIN [Suspect]
     Active Substance: SOMATROPIN
     Indication: GROWTH HORMONE DEFICIENCY
     Dosage: 1.5 MG, 1X/DAY (1.5MG SUBCUTANEOUS BEDTIME )
     Route: 058
  6. CORTEF [Suspect]
     Active Substance: HYDROCORTISONE
     Dosage: 1.5 DF, 2X/DAY ( (2 IN 1 D))
     Route: 048
  7. GENOTROPIN [Suspect]
     Active Substance: SOMATROPIN
     Indication: HYPOPITUITARISM
     Dosage: 1.5 MG, DAILY AT BEDTIME (7 DAYS/WK)
     Route: 058
  8. PROVERA [Suspect]
     Active Substance: MEDROXYPROGESTERONE ACETATE
     Indication: MENSTRUAL CYCLE MANAGEMENT
     Dosage: 10 MG, DAILY (10 MG, 1 IN 1 D)
     Route: 048
     Dates: start: 2016, end: 201611

REACTIONS (4)
  - Depression [Unknown]
  - Anxiety [Unknown]
  - Depressed mood [Unknown]
  - Suicide attempt [Recovered/Resolved]

NARRATIVE: CASE EVENT DATE: 2016
